FAERS Safety Report 6648595-1 (Version None)
Quarter: 2010Q1

REPORT INFORMATION
  Report Type: 
  Country: None (occurrence: None)
  Receive Date: 20100319
  Receipt Date: 20100224
  Transmission Date: 20100710
  Serious: Yes (Hospitalization)
  Sender: FDA-Public Use
  Company Number: BE-001580

PATIENT
  Sex: Male
  Weight: 98 kg

DRUGS (12)
  1. DEGARELIX        (DEGARELIX) [Suspect]
     Indication: PROSTATE CANCER
     Dosage: 240 MG SUBCUTANEOUS; 80 MG SUBCUTANEOUS
     Route: 058
     Dates: start: 20090804, end: 20090804
  2. DEGARELIX        (DEGARELIX) [Suspect]
     Indication: PROSTATE CANCER
     Dosage: 240 MG SUBCUTANEOUS; 80 MG SUBCUTANEOUS
     Route: 058
     Dates: start: 20090901, end: 20100119
  3. DEGARELICX (DEGARELIX) [Suspect]
  4. TACROLIMUS (TACROLIMUS) 3 MG [Suspect]
     Indication: RENAL TRANSPLANT
     Dosage: ORAL
     Route: 048
     Dates: start: 20020101
  5. PREDNISOLONE [Suspect]
     Indication: RENAL TRANSPLANT
     Dosage: 3 MG QD
     Dates: start: 20020901
  6. CELLCEPT [Concomitant]
  7. GLURENORM [Concomitant]
  8. ATENOLOL [Concomitant]
  9. AMLOR [Concomitant]
  10. DETHYRONE [Concomitant]
  11. TRAZOLAN [Concomitant]
  12. ZYLORIC /00003301/ [Concomitant]

REACTIONS (2)
  - CONDITION AGGRAVATED [None]
  - DIABETES MELLITUS [None]
